FAERS Safety Report 10405142 (Version 1)
Quarter: 2014Q3

REPORT INFORMATION
  Report Type: Spontaneous
  Country: US (occurrence: None)
  Receive Date: 20140819
  Receipt Date: 20140819
  Transmission Date: 20150326
  Serious: Yes (Hospitalization)
  Sender: FDA-Public Use
  Company Number: None

PATIENT
  Age: 54 Year
  Sex: Female
  Weight: 180 kg

DRUGS (6)
  1. CIPROFLAXIN [Suspect]
     Active Substance: CIPROFLOXACIN
     Indication: GASTROINTESTINAL INFECTION
     Dosage: 500 MG, 1 TABLET 2X/DAY, 2X A DAY, MOUTH
     Route: 048
     Dates: start: 20130301, end: 20130308
  2. LISINOPRIL. [Concomitant]
     Active Substance: LISINOPRIL
  3. CIPROFLAXIN [Suspect]
     Active Substance: CIPROFLOXACIN
     Indication: PAIN IN EXTREMITY
     Dosage: 500 MG, 1 TABLET 2X/DAY, 2X A DAY, MOUTH
     Route: 048
     Dates: start: 20130301, end: 20130308
  4. SYNTHROID [Concomitant]
     Active Substance: LEVOTHYROXINE SODIUM
  5. MULTIVITAMIN [Concomitant]
     Active Substance: VITAMINS
  6. CIPROFLAXIN [Suspect]
     Active Substance: CIPROFLOXACIN
     Indication: THROMBOSIS
     Dosage: 500 MG, 1 TABLET 2X/DAY, 2X A DAY, MOUTH
     Route: 048
     Dates: start: 20130301, end: 20130308

REACTIONS (3)
  - Deep vein thrombosis [None]
  - Pain in extremity [None]
  - Embolism [None]

NARRATIVE: CASE EVENT DATE: 201303
